FAERS Safety Report 5095604-X (Version None)
Quarter: 2006Q3

REPORT INFORMATION
  Report Type: 
  Country: None (occurrence: None)
  Receive Date: 20060901
  Receipt Date: 20060817
  Transmission Date: 20061208
  Serious: Yes (Life-Threatening, Hospitalization, Disabling)
  Sender: FDA-Public Use
  Company Number: US-BOEHRINGER INGELHEIM PHARMACEUTICALS, INC.-2006-BP-09553BP

PATIENT
  Age: 37 Year
  Sex: Male
  Weight: 68.2 kg

DRUGS (15)
  1. APTIVUS/RITONAVIR CAPSULES [Suspect]
     Indication: HIV INFECTION
     Dosage: TPV/ RTV 1000/400 MG
     Route: 048
     Dates: start: 20060720, end: 20060801
  2. APTIVUS/RITONAVIR CAPSULES [Suspect]
     Dosage: PT. TOOK TPV WITHOUT RTV BOOSTER
     Route: 048
     Dates: start: 20051101, end: 20060720
  3. MEGACE [Concomitant]
  4. PRAVACHOL [Concomitant]
  5. DARAPRIM [Concomitant]
  6. BUSPAR [Concomitant]
  7. KEPPRA [Concomitant]
  8. SEREVENT [Concomitant]
  9. CHOLESTYRAMINE [Concomitant]
  10. CELEXA [Concomitant]
  11. SULFADIAZINE [Concomitant]
  12. ZYPREXA [Concomitant]
  13. LEUCOVORIN CALCIUM [Concomitant]
  14. TRUVADA [Concomitant]
     Indication: HIV INFECTION
     Dates: start: 20051101
  15. FUZEON [Concomitant]
     Indication: HIV INFECTION
     Dates: start: 20051101

REACTIONS (9)
  - BLOOD PRESSURE INCREASED [None]
  - CEREBRAL HAEMORRHAGE [None]
  - DRUG INEFFECTIVE [None]
  - HAEMORRHAGE INTRACRANIAL [None]
  - HYDROCEPHALUS [None]
  - MALAISE [None]
  - MENTAL STATUS CHANGES [None]
  - PLATELET COUNT DECREASED [None]
  - WHITE BLOOD CELL COUNT DECREASED [None]
